FAERS Safety Report 4475653-2 (Version None)
Quarter: 2004Q3

REPORT INFORMATION
  Report Type: 
  Country: None (occurrence: None)
  Receive Date: 20040923
  Receipt Date: 20040714
  Transmission Date: 20050211
  Serious: No
  Sender: FDA-Public Use
  Company Number: USA040772684

PATIENT
  Age: 50 Year
  Sex: Female

DRUGS (2)
  1. FORTEO [Suspect]
     Indication: OSTEOPOROSIS
     Dates: start: 20040708
  2. AVANDIA [Concomitant]

REACTIONS (1)
  - BLOOD GLUCOSE INCREASED [None]
